FAERS Safety Report 10488515 (Version 1)
Quarter: 2014Q3

REPORT INFORMATION
  Report Type: Spontaneous
  Country: US (occurrence: None)
  Receive Date: 20140815
  Receipt Date: 20140815
  Transmission Date: 20150326
  Serious: Yes (Hospitalization, Other)
  Sender: FDA-Public Use
  Company Number: ADR-2013-01617

PATIENT
  Age: 44 Year
  Sex: Female

DRUGS (2)
  1. BACLOFEN INTRATHECAL [Suspect]
     Active Substance: BACLOFEN
  2. MORPHINE [Suspect]
     Active Substance: MORPHINE

REACTIONS (2)
  - Confusional state [None]
  - Overdose [None]

NARRATIVE: CASE EVENT DATE: 20130906
